FAERS Safety Report 19582195 (Version 1)
Quarter: 2021Q3

REPORT INFORMATION
  Report Type: Spontaneous
  Country: US (occurrence: US)
  Receive Date: 20210719
  Receipt Date: 20210719
  Transmission Date: 20211014
  Serious: No
  Sender: FDA-Public Use
  Company Number: US-GALDERMA-US2021012715

PATIENT

DRUGS (12)
  1. PROACTIV GREEN TEA MOISTURIZER [Concomitant]
     Active Substance: COSMETICS
     Indication: ACNE
  2. PROACTIV MD ADAPALENE ACNE TREATMENT [Suspect]
     Active Substance: ADAPALENE
     Indication: SCAR
  3. PROACTIV MD ULTRA GENTLE CLEANSER [Concomitant]
     Indication: SCAR
  4. PROACTIV MD DAILY OIL CONTROL SPF 30 [Suspect]
     Active Substance: AVOBENZONE\OCTISALATE\OCTOCRYLENE
     Indication: ACNE
  5. PROACTIV MD ULTRA GENTLE CLEANSER [Concomitant]
     Indication: SKIN HYPERPIGMENTATION
     Dosage: 1 DOSAGE FORM, QD, DAILY
     Route: 061
     Dates: start: 202104, end: 2021
  6. PROACTIV MD ADAPALENE ACNE TREATMENT [Suspect]
     Active Substance: ADAPALENE
     Indication: SKIN HYPERPIGMENTATION
     Dosage: 1 DOSAGE FORM, ONCE A DAY
     Route: 061
     Dates: start: 202104, end: 2021
  7. PROACTIV MD DAILY OIL CONTROL SPF 30 [Suspect]
     Active Substance: AVOBENZONE\OCTISALATE\OCTOCRYLENE
     Indication: SKIN HYPERPIGMENTATION
     Dosage: 1 DOSAGE FORM, QD, DAILY, CUTANEOUS SOLUTION
     Route: 061
     Dates: start: 202104, end: 2021
  8. PROACTIV MD DAILY OIL CONTROL SPF 30 [Suspect]
     Active Substance: AVOBENZONE\OCTISALATE\OCTOCRYLENE
     Indication: SCAR
  9. PROACTIV GREEN TEA MOISTURIZER [Concomitant]
     Active Substance: COSMETICS
     Indication: SKIN HYPERPIGMENTATION
     Dosage: 1 DOSAGE FORM, QD, DAILY
     Route: 061
     Dates: start: 202104, end: 2021
  10. PROACTIV MD ULTRA GENTLE CLEANSER [Concomitant]
     Indication: ACNE
  11. PROACTIV MD ADAPALENE ACNE TREATMENT [Suspect]
     Active Substance: ADAPALENE
     Indication: ACNE
  12. PROACTIV GREEN TEA MOISTURIZER [Concomitant]
     Active Substance: COSMETICS
     Indication: SCAR

REACTIONS (5)
  - Skin irritation [Recovered/Resolved]
  - Skin exfoliation [Recovered/Resolved]
  - Contusion [Recovered/Resolved]
  - Hypersensitivity [Recovered/Resolved]
  - Dry skin [Recovered/Resolved]

NARRATIVE: CASE EVENT DATE: 202104
